FAERS Safety Report 25385070 (Version 2)
Quarter: 2025Q2

REPORT INFORMATION
  Report Type: Spontaneous
  Country: CA (occurrence: CA)
  Receive Date: 20250602
  Receipt Date: 20250603
  Transmission Date: 20250716
  Serious: Yes (Other)
  Sender: TEVA
  Company Number: CA-TEVA-VS-3335593

PATIENT
  Age: 82 Year
  Sex: Male

DRUGS (3)
  1. GUAIFENESIN [Suspect]
     Active Substance: GUAIFENESIN
     Indication: Rhinorrhoea
     Route: 048
     Dates: start: 20250520
  2. Apo Salbutamol HFA [Concomitant]
     Indication: Product used for unknown indication
     Route: 055
  3. TRELEGY ELLIPTA [Concomitant]
     Active Substance: FLUTICASONE FUROATE\UMECLIDINIUM BROMIDE\VILANTEROL TRIFENATATE
     Indication: Product used for unknown indication
     Route: 065

REACTIONS (9)
  - Choking [Unknown]
  - Malaise [Unknown]
  - Dizziness [Unknown]
  - Dyspnoea [Unknown]
  - Diarrhoea [Unknown]
  - Contraindicated product administered [Unknown]
  - Increased viscosity of upper respiratory secretion [Unknown]
  - Dysarthria [Unknown]
  - Product label issue [Unknown]

NARRATIVE: CASE EVENT DATE: 20250501
